FAERS Safety Report 8909992 (Version 4)
Quarter: 2013Q1

REPORT INFORMATION
  Report Type: Spontaneous
  Country: US (occurrence: US)
  Receive Date: 20121114
  Receipt Date: 20130123
  Transmission Date: 20140127
  Serious: No
  Sender: FDA-Public Use
  Company Number: US-TEVA-367585USA

PATIENT
  Age: 81 None
  Sex: Male

DRUGS (2)
  1. AZILECT [Suspect]
     Indication: PARKINSON^S DISEASE
     Dosage: 1 MILLIGRAM DAILY; IMPRINT CODE: G1L-1
     Route: 048
     Dates: start: 20120916, end: 20121015
  2. AZILECT [Suspect]
     Indication: TREMOR
     Dosage: 1 MILLIGRAM DAILY;
     Route: 048
     Dates: start: 20121016

REACTIONS (2)
  - Drug ineffective [Recovering/Resolving]
  - Tremor [Recovering/Resolving]
